FAERS Safety Report 6266541-X (Version None)
Quarter: 2009Q3

REPORT INFORMATION
  Report Type: 
  Country: None (occurrence: None)
  Receive Date: 20090713
  Receipt Date: 20090701
  Transmission Date: 20100115
  Serious: Yes (Hospitalization)
  Sender: FDA-Public Use
  Company Number: FR-MERCK-0904FRA00082

PATIENT
  Age: 71 Year
  Sex: Male

DRUGS (14)
  1. PRIMAXIN [Suspect]
     Indication: CYSTITIS
     Route: 051
     Dates: start: 20090301, end: 20090401
  2. PRIMAXIN [Suspect]
     Indication: KIDNEY INFECTION
     Route: 051
     Dates: start: 20090301, end: 20090401
  3. AMIODARONE HYDROCHLORIDE [Concomitant]
     Route: 065
  4. FUROSEMIDE [Concomitant]
     Route: 048
  5. POTASSIUM CHLORIDE [Concomitant]
     Route: 065
  6. SPIRONOLACTONE [Concomitant]
     Route: 065
  7. FLUINDIONE [Concomitant]
     Route: 065
  8. SIMVASTATIN [Concomitant]
     Route: 065
  9. ALLOPURINOL [Concomitant]
     Route: 065
  10. VALPROATE SODIUM [Concomitant]
     Route: 065
  11. ZOPICLONE [Concomitant]
     Route: 065
  12. BISOPROLOL FUMARATE [Concomitant]
     Route: 065
  13. CEFTAZIDIME [Concomitant]
     Indication: CYSTITIS
     Route: 051
     Dates: start: 20090201, end: 20090301
  14. CEFTAZIDIME [Concomitant]
     Indication: KIDNEY INFECTION
     Route: 051
     Dates: start: 20090201, end: 20090301

REACTIONS (2)
  - INJECTION SITE HAEMATOMA [None]
  - NERVE COMPRESSION [None]
